FAERS Safety Report 6407961-X (Version None)
Quarter: 2009Q4

REPORT INFORMATION
  Report Type: 
  Country: None (occurrence: None)
  Receive Date: 20091020
  Receipt Date: 20091012
  Transmission Date: 20100525
  Serious: Yes (Other)
  Sender: FDA-Public Use
  Company Number: DE-JNJCH-2009027136

PATIENT
  Sex: Female

DRUGS (2)
  1. ROGAINE [Suspect]
     Indication: DRUG USE FOR UNKNOWN INDICATION
     Dosage: TEXT:UNSPECIFIED
     Route: 065
  2. ANTIHYPERTENSIVES [Concomitant]
     Indication: HYPERTENSION
     Dosage: TEXT:UNSPECIFIED - DOSE REDUCED
     Route: 065

REACTIONS (4)
  - ALOPECIA [None]
  - LUPUS-LIKE SYNDROME [None]
  - SICCA SYNDROME [None]
  - THERAPEUTIC RESPONSE UNEXPECTED [None]
